FAERS Safety Report 16013447 (Version 3)
Quarter: 2019Q2

REPORT INFORMATION
  Report Type: Spontaneous
  Country: US (occurrence: US)
  Receive Date: 20190227
  Receipt Date: 20190524
  Transmission Date: 20190711
  Serious: Yes (Other)
  Sender: FDA-Public Use
  Company Number: US-PFIZER INC-2019073166

PATIENT
  Age: 64 Year
  Sex: Male

DRUGS (1)
  1. VIAGRA [Suspect]
     Active Substance: SILDENAFIL CITRATE
     Indication: HEPATIC CIRRHOSIS
     Dosage: UNK

REACTIONS (6)
  - Diabetes mellitus [Recovered/Resolved]
  - Hypertension [Recovered/Resolved]
  - Hormone level abnormal [Recovered/Resolved]
  - Product use in unapproved indication [Recovered/Resolved]
  - Infection [Recovered/Resolved]
  - Drug ineffective [Recovered/Resolved]
